FAERS Safety Report 18315701 (Version 1)
Quarter: 2020Q3

REPORT INFORMATION
  Report Type: Spontaneous
  Country: CA (occurrence: CA)
  Receive Date: 20200926
  Receipt Date: 20200926
  Transmission Date: 20201103
  Serious: Yes (Hospitalization, Other)
  Sender: FDA-Public Use
  Company Number: CA-TEVA-2020-CA-1832401

PATIENT
  Age: 21 Year
  Sex: Female

DRUGS (11)
  1. COLCHICINE. [Suspect]
     Active Substance: COLCHICINE
     Route: 065
  2. ARAVA [Suspect]
     Active Substance: LEFLUNOMIDE
     Dosage: 20 MILLIGRAM DAILY;
     Route: 065
  3. METHOTREXATE. [Suspect]
     Active Substance: METHOTREXATE
     Route: 065
  4. ACETYLSALICYLIC ACID [Suspect]
     Active Substance: ASPIRIN
     Route: 065
  5. PREDNISONE. [Suspect]
     Active Substance: PREDNISONE
     Route: 065
  6. HUMIRA [Suspect]
     Active Substance: ADALIMUMAB
     Route: 058
  7. ENBREL [Suspect]
     Active Substance: ETANERCEPT
     Route: 065
  8. METHOTREXATE. [Suspect]
     Active Substance: METHOTREXATE
     Route: 065
  9. DOXYCYCLINE. [Suspect]
     Active Substance: DOXYCYCLINE
     Dosage: 200 MILLIGRAM DAILY;
     Route: 065
  10. REMICADE [Suspect]
     Active Substance: INFLIXIMAB
     Route: 042
  11. ORENCIA [Suspect]
     Active Substance: ABATACEPT
     Route: 065

REACTIONS (9)
  - Drug intolerance [Unknown]
  - Pneumonia [Unknown]
  - Drug hypersensitivity [Unknown]
  - Hospitalisation [Unknown]
  - Rheumatoid arthritis [Unknown]
  - Nephrolithiasis [Unknown]
  - Rash [Unknown]
  - Therapeutic product effect incomplete [Unknown]
  - Infection [Unknown]
